FAERS Safety Report 21379487 (Version 1)
Quarter: 2022Q3

REPORT INFORMATION
  Report Type: Other
  Country: ES (occurrence: ES)
  Receive Date: 20220927
  Receipt Date: 20220927
  Transmission Date: 20221026
  Serious: Yes (Life-Threatening, Other)
  Sender: FDA-Public Use
  Company Number: ES-ASTELLAS-2022US034249

PATIENT
  Age: 71 Year
  Sex: Female

DRUGS (12)
  1. REGADENOSON [Suspect]
     Active Substance: REGADENOSON
     Indication: Scan with contrast
     Dosage: 5 ML, SINGLE (ONCE)
     Route: 042
     Dates: start: 20220613, end: 20220613
  2. REGADENOSON [Suspect]
     Active Substance: REGADENOSON
     Indication: Scan with contrast
     Dosage: 5 ML, SINGLE (ONCE)
     Route: 042
     Dates: start: 20220613, end: 20220613
  3. REGADENOSON [Suspect]
     Active Substance: REGADENOSON
     Indication: Scan with contrast
     Dosage: 5 ML, SINGLE (ONCE)
     Route: 042
     Dates: start: 20220613, end: 20220613
  4. REGADENOSON [Suspect]
     Active Substance: REGADENOSON
     Indication: Scan with contrast
     Dosage: 5 ML, SINGLE (ONCE)
     Route: 042
     Dates: start: 20220613, end: 20220613
  5. REGADENOSON [Suspect]
     Active Substance: REGADENOSON
     Indication: Product used for unknown indication
  6. REGADENOSON [Suspect]
     Active Substance: REGADENOSON
     Indication: Product used for unknown indication
  7. REGADENOSON [Suspect]
     Active Substance: REGADENOSON
     Indication: Product used for unknown indication
  8. REGADENOSON [Suspect]
     Active Substance: REGADENOSON
     Indication: Product used for unknown indication
  9. RESINCOLESTIRAMINA [Concomitant]
     Indication: Dyslipidaemia
     Route: 065
     Dates: start: 202012
  10. CETIRIZINE HYDROCHLORIDE [Concomitant]
     Active Substance: CETIRIZINE HYDROCHLORIDE
     Indication: Vasomotor rhinitis
     Dosage: UNK UNK, UNKNOWN FREQ.
     Route: 065
     Dates: start: 201708
  11. SIMVASTATIN [Concomitant]
     Active Substance: SIMVASTATIN
     Indication: Dyslipidaemia
     Dosage: UNK UNK, UNKNOWN FREQ.
     Route: 065
     Dates: start: 202109
  12. LEVOTHYROXINE SODIUM [Concomitant]
     Active Substance: LEVOTHYROXINE SODIUM
     Indication: Hypothyroidism
     Dosage: UNK UNK, UNKNOWN FREQ.
     Route: 065
     Dates: start: 200711

REACTIONS (1)
  - Status epilepticus [Recovered/Resolved]

NARRATIVE: CASE EVENT DATE: 20220613
